FAERS Safety Report 20823256 (Version 1)
Quarter: 2022Q2

REPORT INFORMATION
  Report Type: Spontaneous
  Country: US (occurrence: US)
  Receive Date: 20220513
  Receipt Date: 20220513
  Transmission Date: 20220721
  Serious: Yes (Hospitalization, Other)
  Sender: FDA-Public Use
  Company Number: US-BRISTOL-MYERS SQUIBB COMPANY-2022-030806

PATIENT
  Age: 77 Year
  Sex: Male
  Weight: 71.667 kg

DRUGS (1)
  1. ONUREG [Suspect]
     Active Substance: AZACITIDINE
     Indication: Acute myeloid leukaemia
     Route: 048

REACTIONS (3)
  - Drug ineffective [Unknown]
  - Bone marrow disorder [Unknown]
  - Malignant neoplasm progression [Unknown]
